FAERS Safety Report 17590025 (Version 3)
Quarter: 2021Q2

REPORT INFORMATION
  Report Type: Report from Study
  Country: US (occurrence: US)
  Receive Date: 20200327
  Receipt Date: 20210412
  Transmission Date: 20210716
  Serious: No
  Sender: FDA-Public Use
  Company Number: US-SHIRE-US202011344

PATIENT
  Age: 83 Year
  Sex: Female
  Weight: 64.9 kg

DRUGS (13)
  1. METOPROLOL SUCCINATE. [Concomitant]
     Active Substance: METOPROLOL SUCCINATE
  2. TEDUGLUTIDE [Suspect]
     Active Substance: TEDUGLUTIDE
     Indication: PRODUCT USED FOR UNKNOWN INDICATION
     Dosage: 3.15 MILLIGRAM, QD
     Route: 058
     Dates: start: 20160701
  3. REQUIP [Concomitant]
     Active Substance: ROPINIROLE HYDROCHLORIDE
     Dosage: UNK MILLIGRAM
     Route: 065
  4. VITAMINS NOS [Concomitant]
     Active Substance: VITAMINS
  5. FAMOTIDINE. [Concomitant]
     Active Substance: FAMOTIDINE
  6. CYANOCOBALAMIN. [Concomitant]
     Active Substance: CYANOCOBALAMIN
  7. VITAMIN D2 [Concomitant]
     Active Substance: ERGOCALCIFEROL
  8. GABAPENTIN. [Concomitant]
     Active Substance: GABAPENTIN
  9. CALCIUM [Concomitant]
     Active Substance: CALCIUM
  10. TEDUGLUTIDE [Suspect]
     Active Substance: TEDUGLUTIDE
     Indication: PRODUCT USED FOR UNKNOWN INDICATION
     Dosage: 3.15 MILLIGRAM, QD
     Route: 058
     Dates: start: 20160701
  11. TEDUGLUTIDE [Suspect]
     Active Substance: TEDUGLUTIDE
     Indication: PRODUCT USED FOR UNKNOWN INDICATION
     Dosage: 3.15 MILLIGRAM, QD
     Route: 058
     Dates: start: 20160701
  12. TEDUGLUTIDE [Suspect]
     Active Substance: TEDUGLUTIDE
     Indication: PRODUCT USED FOR UNKNOWN INDICATION
     Dosage: 3.15 MILLIGRAM, QD
     Route: 058
     Dates: start: 20160701
  13. ASPIRIN (E.C.) [Concomitant]
     Active Substance: ASPIRIN

REACTIONS (3)
  - Arthritis [Not Recovered/Not Resolved]
  - COVID-19 [Recovered/Resolved]
  - Wrong technique in product usage process [Unknown]

NARRATIVE: CASE EVENT DATE: 202101
